FAERS Safety Report 6521106-7 (Version None)
Quarter: 2009Q4

REPORT INFORMATION
  Report Type: 
  Country: None (occurrence: None)
  Receive Date: 20091229
  Receipt Date: 20091217
  Transmission Date: 20100525
  Serious: Yes (Death)
  Sender: FDA-Public Use
  Company Number: US-GENENTECH-296214

PATIENT
  Age: 3 Year
  Sex: Female

DRUGS (3)
  1. RITUXAN [Suspect]
     Indication: ENCEPHALITIS
     Dosage: 375 MG/M2, 1/WEEK
     Dates: start: 20081201
  2. ACTH [Concomitant]
     Indication: DRUG USE FOR UNKNOWN INDICATION
     Dosage: UNK
     Dates: start: 20081201
  3. IMMUNE GLOBULIN INTRAVENOUS (HUMAN) [Concomitant]
     Indication: DRUG USE FOR UNKNOWN INDICATION
     Dosage: UNK
     Dates: start: 20081201

REACTIONS (2)
  - BONE MARROW FAILURE [None]
  - SEPSIS [None]
